FAERS Safety Report 24001394 (Version 2)
Quarter: 2024Q2

REPORT INFORMATION
  Report Type: Spontaneous
  Country: DE (occurrence: DE)
  Receive Date: 20240621
  Receipt Date: 20240627
  Transmission Date: 20240715
  Serious: Yes (Other)
  Sender: FDA-Public Use
  Company Number: None

PATIENT
  Age: 45 Year
  Sex: Female
  Weight: 63 kg

DRUGS (1)
  1. DOTAREM [Suspect]
     Active Substance: GADOTERATE MEGLUMINE
     Indication: Magnetic resonance imaging abdominal
     Route: 042
     Dates: start: 20220103, end: 20220103

REACTIONS (15)
  - Lipodystrophy acquired [Recovering/Resolving]
  - Somnolence [Recovered/Resolved]
  - Fatigue [Unknown]
  - Dizziness [Recovering/Resolving]
  - Weight decreased [Recovering/Resolving]
  - Contrast media toxicity [Unknown]
  - Myalgia [Recovering/Resolving]
  - Pain of skin [Unknown]
  - Brain fog [Recovering/Resolving]
  - Chest pain [Recovering/Resolving]
  - Muscle twitching [Not Recovered/Not Resolved]
  - Back pain [Unknown]
  - Pain [Not Recovered/Not Resolved]
  - Somnolence [Recovering/Resolving]
  - Muscular weakness [Not Recovered/Not Resolved]

NARRATIVE: CASE EVENT DATE: 20220103
